FAERS Safety Report 5064239-7 (Version None)
Quarter: 2006Q3

REPORT INFORMATION
  Report Type: 
  Country: None (occurrence: None)
  Receive Date: 20060726
  Receipt Date: 20060726
  Transmission Date: 20061208
  Serious: Yes (Other)
  Sender: FDA-Public Use
  Company Number: None

PATIENT
  Age: 83 Month
  Sex: Female
  Weight: 51.2565 kg

DRUGS (1)
  1. LEVAQUIN [Suspect]
     Indication: VULVAL DISORDER
     Dosage: 1 TABLET DAILY PO
     Route: 048
     Dates: start: 20060622, end: 20060626

REACTIONS (1)
  - URTICARIA [None]
